FAERS Safety Report 21656299 (Version 2)
Quarter: 2022Q4

REPORT INFORMATION
  Report Type: Spontaneous
  Country: US (occurrence: US)
  Receive Date: 20221129
  Receipt Date: 20221226
  Transmission Date: 20230113
  Serious: Yes (Other)
  Sender: FDA-Public Use
  Company Number: US-BAYER-2022P022864

PATIENT
  Age: 61 Year
  Sex: Male

DRUGS (1)
  1. KOGENATE FS [Suspect]
     Active Substance: ANTIHEMOPHILIC FACTOR, HUMAN RECOMBINANT
     Dosage: INFUSE 1600/3200 UNITS AS NEEDED
     Route: 042

REACTIONS (1)
  - Spontaneous haemorrhage [None]

NARRATIVE: CASE EVENT DATE: 20221117
